FAERS Safety Report 15004796 (Version 1)
Quarter: 2018Q2

REPORT INFORMATION
  Report Type: Spontaneous
  Country: JP (occurrence: JP)
  Receive Date: 20180613
  Receipt Date: 20180613
  Transmission Date: 20180711
  Serious: Yes (Hospitalization, Other)
  Sender: FDA-Public Use
  Company Number: JP-PFIZER INC-2018229500

PATIENT
  Age: 81 Year
  Sex: Male
  Weight: 70.6 kg

DRUGS (16)
  1. CISPLATIN MARUKO [Suspect]
     Active Substance: CISPLATIN
     Dosage: 125 MG, 1X/DAY
     Route: 013
     Dates: start: 20180320, end: 20180320
  2. CELECOX [Concomitant]
     Active Substance: CELECOXIB
  3. CISPLATIN MARUKO [Suspect]
     Active Substance: CISPLATIN
     Indication: BLADDER CANCER
     Dosage: 125 MG, 1X/DAY
     Route: 013
     Dates: start: 20180111, end: 20180111
  4. URIEF [Concomitant]
     Active Substance: SILODOSIN
  5. ATARAX-P [Concomitant]
     Active Substance: HYDROXYZINE HYDROCHLORIDE
  6. FARMORUBICIN [Suspect]
     Active Substance: EPIRUBICIN HYDROCHLORIDE
     Dosage: 50 MG, 1X/DAY
     Route: 013
     Dates: start: 20180320, end: 20180320
  7. AVOLVE [Concomitant]
     Active Substance: DUTASTERIDE
  8. SELARA [Concomitant]
     Active Substance: EPLERENONE
  9. ALOXI [Concomitant]
     Active Substance: PALONOSETRON HYDROCHLORIDE
  10. DEXART [Concomitant]
     Active Substance: DEXAMETHASONE SODIUM PHOSPHATE
  11. MANNITOL. [Concomitant]
     Active Substance: MANNITOL
  12. FARMORUBICIN [Suspect]
     Active Substance: EPIRUBICIN HYDROCHLORIDE
     Indication: BLADDER CANCER
     Dosage: 50 MG, 1X/DAY
     Route: 013
     Dates: start: 20180111, end: 20180111
  13. FUROSEMIDE. [Concomitant]
     Active Substance: FUROSEMIDE
  14. CARVEDILOL. [Concomitant]
     Active Substance: CARVEDILOL
  15. LAC B [Concomitant]
     Active Substance: BIFIDOBACTERIUM SPP.
  16. EMEND [Concomitant]
     Active Substance: APREPITANT

REACTIONS (4)
  - Gait disturbance [Recovering/Resolving]
  - Musculoskeletal pain [Recovering/Resolving]
  - Infusion site extravasation [Unknown]
  - Dermatitis [Recovering/Resolving]

NARRATIVE: CASE EVENT DATE: 20180323
